FAERS Safety Report 5523260-2 (Version None)
Quarter: 2007Q4

REPORT INFORMATION
  Report Type: 
  Country: None (occurrence: None)
  Receive Date: 20071119
  Receipt Date: 20071119
  Transmission Date: 20080405
  Serious: No
  Sender: FDA-Public Use
  Company Number: None

PATIENT
  Sex: Female
  Weight: 56.6996 kg

DRUGS (1)
  1. NITROFURANTOIN (MONOHYDRATE/MACROCRYSTALS) [Suspect]
     Indication: CYSTITIS
     Dosage: 100 MG 2X DAILY PO
     Route: 048
     Dates: start: 20071105, end: 20071118

REACTIONS (1)
  - CONSTIPATION [None]
